FAERS Safety Report 5343686-X (Version None)
Quarter: 2007Q2

REPORT INFORMATION
  Report Type: 
  Country: None (occurrence: None)
  Receive Date: 20070531
  Receipt Date: 20070531
  Transmission Date: 20071010
  Serious: Yes (Hospitalization)
  Sender: FDA-Public Use
  Company Number: None

PATIENT
  Age: 47 Year
  Sex: Male
  Weight: 150 kg

DRUGS (6)
  1. AVANDIA [Suspect]
     Indication: DIABETES MELLITUS
     Dosage: 2 MG TWICE DAILY ORAL
     Route: 048
  2. TOPROL-XL [Concomitant]
  3. ASPIRIN [Concomitant]
  4. ALBUTEROL [Concomitant]
  5. VITAMIN CAP [Concomitant]
  6. HERBALS (GARLIC ^HERBILAX^) [Concomitant]

REACTIONS (3)
  - LUNG INFILTRATION [None]
  - PERICARDIAL EFFUSION [None]
  - PLEURAL EFFUSION [None]
